FAERS Safety Report 17233135 (Version 2)
Quarter: 2020Q1

REPORT INFORMATION
  Report Type: Spontaneous
  Country: JP (occurrence: JP)
  Receive Date: 20200104
  Receipt Date: 20200302
  Transmission Date: 20200409
  Serious: Yes (Hospitalization, Other)
  Sender: FDA-Public Use
  Company Number: JP-AMGEN-JPNNI2019123686

PATIENT
  Sex: Female

DRUGS (1)
  1. BLINCYTO [Suspect]
     Active Substance: BLINATUMOMAB
     Indication: ACUTE LYMPHOCYTIC LEUKAEMIA RECURRENT
     Dosage: UNK
     Route: 065
     Dates: start: 201906, end: 201908

REACTIONS (8)
  - Decreased appetite [Unknown]
  - Laryngeal inflammation [Unknown]
  - Oesophagitis [Unknown]
  - Gastrointestinal haemorrhage [Unknown]
  - Therapeutic product effect decreased [Unknown]
  - Acute lymphocytic leukaemia recurrent [Unknown]
  - Mucormycosis [Unknown]
  - Decreased immune responsiveness [Unknown]

NARRATIVE: CASE EVENT DATE: 2019
